FAERS Safety Report 23826570 (Version 1)
Quarter: 2024Q2

REPORT INFORMATION
  Report Type: Spontaneous
  Country: US (occurrence: US)
  Receive Date: 20240507
  Receipt Date: 20240507
  Transmission Date: 20240716
  Serious: No
  Sender: FDA-Public Use
  Company Number: US-UCBSA-2024004956

PATIENT
  Sex: Female
  Weight: 79.819 kg

DRUGS (1)
  1. CIMZIA [Suspect]
     Active Substance: CERTOLIZUMAB PEGOL
     Indication: Psoriatic arthropathy
     Dosage: 400 MILLIGRAM (2 SYRINGES), EV 4 WEEKS AS DIRECTED
     Route: 058
     Dates: start: 202302

REACTIONS (1)
  - Illness [Unknown]
